FAERS Safety Report 6334962-2 (Version None)
Quarter: 2009Q3

REPORT INFORMATION
  Report Type: 
  Country: None (occurrence: None)
  Receive Date: 20090831
  Receipt Date: 20090825
  Transmission Date: 20100115
  Serious: No
  Sender: FDA-Public Use
  Company Number: US-BAYER-200917508NA

PATIENT
  Age: 33 Year
  Sex: Female
  Weight: 59 kg

DRUGS (4)
  1. ULTRAVIST (PHARMACY BULK) [Suspect]
     Indication: COMPUTERISED TOMOGRAM THORAX
     Dosage: TOTAL DAILY DOSE: 80 ML  UNIT DOSE: 500 ML
     Route: 042
     Dates: start: 20090331, end: 20090331
  2. STEROID [Concomitant]
     Indication: PREMEDICATION
     Dosage: 12 HOUR PRIOR TO ULTRAVIST
     Dates: start: 20090330, end: 20090330
  3. STEROID [Concomitant]
     Dosage: 6 HOURS PROIR TO ULTRAVIST
     Dates: start: 20090331, end: 20090331
  4. STEROID [Concomitant]
     Dosage: 2 HOUR PRIOR TO ULTRAVIST
     Dates: start: 20090331, end: 20090331

REACTIONS (1)
  - URTICARIA [None]
